FAERS Safety Report 22275174 (Version 1)
Quarter: 2023Q2

REPORT INFORMATION
  Report Type: Spontaneous
  Country: BE (occurrence: BE)
  Receive Date: 20230502
  Receipt Date: 20230502
  Transmission Date: 20230722
  Serious: Yes (Other)
  Sender: FDA-Public Use
  Company Number: None

PATIENT
  Age: 27 Year
  Sex: Male

DRUGS (2)
  1. MINOCYCLINE [Suspect]
     Active Substance: MINOCYCLINE HYDROCHLORIDE
     Indication: Acne
     Dosage: 1 DOSAGE FORM, 1 TOTAL
     Route: 065
  2. MINOCYCLINE HYDROCHLORIDE [Suspect]
     Active Substance: MINOCYCLINE HYDROCHLORIDE
     Indication: Acne
     Dosage: 1 DOSAGE FORM, 1 TOTAL
     Route: 065
     Dates: start: 20230222

REACTIONS (4)
  - Palpitations [Recovered/Resolved]
  - Rash [Recovered/Resolved]
  - Dysphagia [Recovered/Resolved]
  - Pruritus [Recovered/Resolved]
